FAERS Safety Report 4838897-3 (Version None)
Quarter: 2005Q4

REPORT INFORMATION
  Report Type: 
  Country: None (occurrence: None)
  Receive Date: 20051129
  Receipt Date: 20041103
  Transmission Date: 20060501
  Serious: Yes (Death, Hospitalization)
  Sender: FDA-Public Use
  Company Number: PHBS2004SE14720

PATIENT
  Age: 58 Year
  Sex: Male

DRUGS (10)
  1. LEPONEX [Suspect]
     Indication: PARKINSON'S DISEASE
     Dosage: 25 MG/D SINCE A FEW YEARS
     Route: 048
  2. ARICEPT [Concomitant]
     Dosage: 10 MG/D
     Route: 048
  3. MADOPAR QUICK [Concomitant]
     Route: 048
  4. MADOPAR MITE [Concomitant]
     Route: 048
  5. DETROL [Concomitant]
     Dosage: 2 MG/D
     Route: 048
  6. REMERON [Concomitant]
     Dosage: 30 MG/D
     Route: 048
  7. EDRONAX [Concomitant]
     Dosage: 4 MG/D
     Route: 048
  8. COMTESS [Concomitant]
     Dosage: 200 MG/D
     Route: 048
  9. TRIOBE [Concomitant]
     Route: 048
  10. LOSEC MUPS [Concomitant]
     Dosage: 10 MG/D
     Route: 048

REACTIONS (6)
  - ARTERIOSCLEROSIS [None]
  - CARDIAC FAILURE ACUTE [None]
  - COUGH [None]
  - PNEUMONIA [None]
  - PULMONARY EMBOLISM [None]
  - SHOULDER PAIN [None]
